FAERS Safety Report 15818821 (Version 1)
Quarter: 2019Q1

REPORT INFORMATION
  Report Type: Spontaneous
  Country: BR (occurrence: BR)
  Receive Date: 20190113
  Receipt Date: 20190113
  Transmission Date: 20190417
  Serious: Yes (Other)
  Sender: FDA-Public Use
  Company Number: BR-BRISTOL-MYERS SQUIBB COMPANY-BMS-2019-002026

PATIENT
  Sex: Male

DRUGS (1)
  1. GLIFAGE XR [Suspect]
     Active Substance: METFORMIN HYDROCHLORIDE
     Indication: DIABETES MELLITUS
     Dosage: UNK
     Route: 048

REACTIONS (2)
  - Diabetes mellitus inadequate control [Unknown]
  - Product residue present [Unknown]
